FAERS Safety Report 11769789 (Version 1)
Quarter: 2015Q4

REPORT INFORMATION
  Report Type: Spontaneous
  Country: NL (occurrence: NL)
  Receive Date: 20151123
  Receipt Date: 20151123
  Transmission Date: 20160304
  Serious: Yes (Death)
  Sender: FDA-Public Use
  Company Number: NL-009507513-1510NLD011268

PATIENT
  Age: 87 Year
  Sex: Female

DRUGS (5)
  1. LORAZEPAM. [Concomitant]
     Active Substance: LORAZEPAM
     Indication: RESTLESSNESS
     Dosage: 1 MG, BID
     Route: 048
     Dates: start: 20141111, end: 20141215
  2. REMERON [Suspect]
     Active Substance: MIRTAZAPINE
     Indication: RESTLESSNESS
     Dosage: 15 PUSHES, 225MG, ONCE
     Route: 048
     Dates: start: 20141111, end: 20141111
  3. REMERON [Suspect]
     Active Substance: MIRTAZAPINE
     Dosage: 5 DROPS/DAY
     Route: 048
     Dates: start: 2014, end: 20141217
  4. HALDOL [Concomitant]
     Active Substance: HALOPERIDOL
     Indication: RESTLESSNESS
     Dosage: 10 GTT, QD, STREGNTH: 2 MG/ML, FORMULATION REPORTED AS ^DRINK^
     Route: 048
     Dates: start: 20141105, end: 20141217
  5. ACETAMINOPHEN. [Concomitant]
     Active Substance: ACETAMINOPHEN
     Indication: PAIN
     Dosage: 1000 MG, TID, IF NECCESARY
     Route: 048
     Dates: start: 20141104, end: 20141111

REACTIONS (5)
  - Drug administration error [Unknown]
  - Lethargy [Recovered/Resolved]
  - Somnolence [Recovered/Resolved]
  - Death [Fatal]
  - Accidental overdose [Unknown]

NARRATIVE: CASE EVENT DATE: 2014
